FAERS Safety Report 8171382-2 (Version None)
Quarter: 2012Q1

REPORT INFORMATION
  Report Type: 
  Country: None (occurrence: None)
  Receive Date: 20120104
  Receipt Date: 20111028
  Transmission Date: 20120608
  Serious: No
  Sender: FDA-Public Use
  Company Number: 2011HGS-002592

PATIENT
  Age: 26 Year
  Sex: Female
  Weight: 85.2762 kg

DRUGS (11)
  1. RESTASIS [Concomitant]
  2. NORTRIPTYLINE HCL [Concomitant]
  3. VITAMIN D [Concomitant]
  4. AMITRIPTYLINE HCL [Concomitant]
  5. DOXYCYCLINE [Concomitant]
  6. VOLTAREN [Concomitant]
  7. PREDNISONE TAB [Concomitant]
  8. BENLYSTA [Suspect]
     Indication: SYSTEMIC LUPUS ERYTHEMATOSUS
     Dosage: 10 MG/KG, 1 IN 2 WK, INTRAVENOUS DRIP
     Route: 041
     Dates: start: 20110831
  9. AZASAN (AZATHIOPRINE) [Concomitant]
  10. PLAQUENIL [Concomitant]
  11. CITALOPRAM HYDROBROMIDE [Concomitant]

REACTIONS (2)
  - VOMITING PROJECTILE [None]
  - NAUSEA [None]
